FAERS Safety Report 5782363-8 (Version None)
Quarter: 2008Q2

REPORT INFORMATION
  Report Type: 
  Country: None (occurrence: None)
  Receive Date: 20080623
  Receipt Date: 20080617
  Transmission Date: 20081010
  Serious: Yes (Life-Threatening)
  Sender: FDA-Public Use
  Company Number: MX-PFIZER INC-2007090677

PATIENT
  Sex: Female
  Weight: 73.5 kg

DRUGS (3)
  1. ZIPRASIDONE (CAPS) [Suspect]
     Indication: BIPOLAR DISORDER
     Route: 048
     Dates: start: 20070216, end: 20071023
  2. BIPERIDEN HYDROCHLORIDE TAB [Concomitant]
     Route: 048
     Dates: start: 20070816, end: 20071023
  3. VALPROIC ACID [Concomitant]
     Route: 048

REACTIONS (1)
  - ARRHYTHMIA [None]
